FAERS Safety Report 15820259 (Version 1)
Quarter: 2019Q1

REPORT INFORMATION
  Report Type: Spontaneous
  Country: US (occurrence: US)
  Receive Date: 20190114
  Receipt Date: 20190114
  Transmission Date: 20190417
  Serious: No
  Sender: FDA-Public Use
  Company Number: US-SUN PHARMACEUTICAL INDUSTRIES LTD-2018US-187785

PATIENT
  Sex: Female

DRUGS (2)
  1. HALCINONIDE [Suspect]
     Active Substance: HALCINONIDE
     Indication: PRURITUS
  2. HALCINONIDE [Suspect]
     Active Substance: HALCINONIDE
     Indication: DRY SKIN
     Dosage: UNK
     Route: 065

REACTIONS (1)
  - Expired product administered [Unknown]
